FAERS Safety Report 8148649 (Version 3)
Quarter: 2013Q4

REPORT INFORMATION
  Report Type: Spontaneous
  Country: US (occurrence: US)
  Receive Date: 20110922
  Receipt Date: 20131015
  Transmission Date: 20140711
  Serious: Yes (Other)
  Sender: FDA-Public Use
  Company Number: US-ASTRAZENECA-2011SE12598

PATIENT
  Age: 50 Year
  Sex: Female
  Weight: 142 kg

DRUGS (7)
  1. SEROQUEL [Suspect]
     Route: 048
  2. MICARDIS HCT [Concomitant]
     Dosage: 80-25MG, DAILY
     Dates: start: 200706
  3. CLONAZEPAM [Concomitant]
     Dosage: 1/2 TABLET BY MOUTH EVERY 12 HOURS
     Route: 048
     Dates: start: 200706
  4. QUINAPRIL [Concomitant]
     Route: 048
     Dates: start: 200706
  5. ATENOLOL [Concomitant]
     Route: 048
     Dates: start: 200706
  6. LITHIUM CARBONATE [Concomitant]
     Dates: start: 200706
  7. ASPIRIN [Concomitant]
     Dates: start: 201009

REACTIONS (4)
  - Pancreatitis [Unknown]
  - Diabetic coma [Unknown]
  - Diabetic neuropathy [Unknown]
  - Type 2 diabetes mellitus [Unknown]
